FAERS Safety Report 9338728 (Version 1)
Quarter: 2013Q2

REPORT INFORMATION
  Report Type: Report from Study
  Country: FR (occurrence: FR)
  Receive Date: 20130610
  Receipt Date: 20130610
  Transmission Date: 20140414
  Serious: Yes (Hospitalization)
  Sender: FDA-Public Use
  Company Number: FR-ROCHE-1232288

PATIENT
  Age: 58 Year
  Sex: Male
  Weight: 76 kg

DRUGS (8)
  1. RITUXIMAB [Suspect]
     Indication: MANTLE CELL LYMPHOMA
     Route: 042
     Dates: start: 20101118
  2. RITUXIMAB [Suspect]
     Route: 042
     Dates: start: 20101221
  3. ARACYTINE [Concomitant]
     Route: 042
     Dates: start: 20101118
  4. ARACYTINE [Concomitant]
     Route: 065
     Dates: start: 20101221
  5. CARBOPLATIN [Concomitant]
     Route: 042
     Dates: start: 20101118
  6. CARBOPLATIN [Concomitant]
     Route: 065
     Dates: start: 20101221
  7. DEXAMETHASONE [Concomitant]
     Route: 042
     Dates: start: 20101118, end: 20101121
  8. DEXAMETHASONE [Concomitant]
     Route: 065
     Dates: start: 20101221

REACTIONS (2)
  - Febrile neutropenia [Recovered/Resolved]
  - Pleural effusion [Recovered/Resolved]
